FAERS Safety Report 8042414-7 (Version None)
Quarter: 2011Q4

REPORT INFORMATION
  Report Type: 
  Country: None (occurrence: None)
  Receive Date: 20111209
  Receipt Date: 20111003
  Transmission Date: 20120403
  Serious: Yes (Other)
  Sender: FDA-Public Use
  Company Number: TH-2011-00394

PATIENT
  Age: 43 Year
  Sex: Male

DRUGS (3)
  1. EGRIFTA [Suspect]
     Indication: LIPODYSTROPHY ACQUIRED
     Dosage: 1 IN 1 D
     Dates: start: 20110801
  2. LISINOPRIL [Concomitant]
  3. AMLODIPINE [Concomitant]

REACTIONS (11)
  - INSOMNIA [None]
  - DIARRHOEA [None]
  - BLOOD PRESSURE INCREASED [None]
  - FATIGUE [None]
  - HYPERSOMNIA [None]
  - ANXIETY [None]
  - PALPITATIONS [None]
  - DEPRESSION [None]
  - ASTHENIA [None]
  - DIZZINESS [None]
  - PAIN [None]
